FAERS Safety Report 6877552-5 (Version None)
Quarter: 2010Q3

REPORT INFORMATION
  Report Type: 
  Country: None (occurrence: None)
  Receive Date: 20100727
  Receipt Date: 20100224
  Transmission Date: 20110219
  Serious: No
  Sender: FDA-Public Use
  Company Number: US-ABBOTT-10P-163-0629435-00

PATIENT
  Age: 30 Year
  Sex: Female
  Weight: 50.848 kg

DRUGS (1)
  1. SYNTHROID [Suspect]
     Indication: THYROID DISORDER
     Dosage: UNKNOWN DOSE, LIGHT BLUE PILL, DAILY
     Route: 048
     Dates: start: 19780101, end: 19810101

REACTIONS (5)
  - ANXIETY [None]
  - ASTHENIA [None]
  - FEELING ABNORMAL [None]
  - GAIT DISTURBANCE [None]
  - PANIC DISORDER [None]
